FAERS Safety Report 26054859 (Version 1)
Quarter: 2025Q4

REPORT INFORMATION
  Report Type: Spontaneous
  Country: US (occurrence: None)
  Receive Date: 20251117
  Receipt Date: 20251117
  Transmission Date: 20260119
  Serious: Yes (Death, Life-Threatening, Hospitalization, Disabling, Other)
  Sender: FDA-CTU
  Company Number: None

PATIENT
  Age: 70 Year
  Sex: Male
  Weight: 75.15 kg

DRUGS (2)
  1. KEYTRUDA [Suspect]
     Active Substance: PEMBROLIZUMAB
     Indication: Transitional cell carcinoma
     Dates: start: 20220720, end: 20250911
  2. PADCEV [Suspect]
     Active Substance: ENFORTUMAB VEDOTIN-EJFV

REACTIONS (10)
  - Central nervous system lesion [None]
  - Brain oedema [None]
  - Colitis [None]
  - Pulmonary mass [None]
  - Hepatic mass [None]
  - Glycosylated haemoglobin increased [None]
  - Blood glucose increased [None]
  - Myoclonic epilepsy [None]
  - Platelet count decreased [None]
  - Myalgia [None]

NARRATIVE: CASE EVENT DATE: 20251114
